FAERS Safety Report 9649521 (Version 2)
Quarter: 2013Q4

REPORT INFORMATION
  Report Type: Report from Study
  Country: US (occurrence: US)
  Receive Date: 20131028
  Receipt Date: 20131115
  Transmission Date: 20140711
  Serious: Yes (Hospitalization)
  Sender: FDA-Public Use
  Company Number: US-ACTELION-A-US2013-90099

PATIENT
  Age: 65 Year
  Sex: Female

DRUGS (2)
  1. TRACLEER [Suspect]
     Indication: PULMONARY ARTERIAL HYPERTENSION
     Dosage: UNK
     Route: 048
  2. COUMADIN [Concomitant]

REACTIONS (6)
  - Gastric haemorrhage [Recovering/Resolving]
  - Nasopharyngitis [Recovering/Resolving]
  - Cough [Recovering/Resolving]
  - Transfusion [Recovering/Resolving]
  - Blood product transfusion [Recovering/Resolving]
  - Haemoglobin decreased [Recovering/Resolving]
